FAERS Safety Report 10488483 (Version 1)
Quarter: 2014Q4

REPORT INFORMATION
  Report Type: Spontaneous
  Country: US (occurrence: None)
  Receive Date: 20141001
  Receipt Date: 20141001
  Transmission Date: 20150528
  Serious: No
  Sender: FDA-Public Use
  Company Number: None

PATIENT
  Age: 6 Year
  Sex: Female
  Weight: 22 kg

DRUGS (1)
  1. READI-CAT2 [Suspect]
     Active Substance: BARIUM SULFATE
     Indication: SCAN WITH CONTRAST
     Dosage: 340 ML X2 AS TOL B4 CT ORAL
     Route: 048
     Dates: start: 20140919, end: 20140919

REACTIONS (1)
  - Blood potassium increased [None]

NARRATIVE: CASE EVENT DATE: 20140919
